FAERS Safety Report 15946556 (Version 3)
Quarter: 2019Q2

REPORT INFORMATION
  Report Type: Spontaneous
  Country: US (occurrence: US)
  Receive Date: 20190211
  Receipt Date: 20190426
  Transmission Date: 20190711
  Serious: Yes (Other)
  Sender: FDA-Public Use
  Company Number: US-ASTRAZENECA-2018SF22689

PATIENT
  Sex: Female

DRUGS (19)
  1. HYDROCHLOROTHIAZIDE. [Concomitant]
     Active Substance: HYDROCHLOROTHIAZIDE
  2. FUROSEMIDE. [Concomitant]
     Active Substance: FUROSEMIDE
  3. NEXIUM [Suspect]
     Active Substance: ESOMEPRAZOLE MAGNESIUM
     Route: 048
     Dates: start: 2005, end: 2016
  4. HYDROCHLOROTHIAZIDE. [Concomitant]
     Active Substance: HYDROCHLOROTHIAZIDE
  5. INDOMETHACIN. [Concomitant]
     Active Substance: INDOMETHACIN
  6. HUMALOG [Concomitant]
     Active Substance: INSULIN LISPRO
  7. PRAVASTATIN. [Concomitant]
     Active Substance: PRAVASTATIN
  8. CARVEDILOL. [Concomitant]
     Active Substance: CARVEDILOL
  9. GLIPIZIDE. [Concomitant]
     Active Substance: GLIPIZIDE
  10. ASPIRIN. [Concomitant]
     Active Substance: ASPIRIN
  11. COREG [Concomitant]
     Active Substance: CARVEDILOL
  12. LISINOPRIL. [Concomitant]
     Active Substance: LISINOPRIL
  13. ONDANSETRON [Concomitant]
     Active Substance: ONDANSETRON
  14. IBUPROFEN. [Concomitant]
     Active Substance: IBUPROFEN
  15. METFORMIN [Concomitant]
     Active Substance: METFORMIN HYDROCHLORIDE
  16. PRILOSEC OTC [Suspect]
     Active Substance: OMEPRAZOLE MAGNESIUM
     Route: 048
  17. LANTUS [Concomitant]
     Active Substance: INSULIN GLARGINE
  18. PRILOSEC OTC [Concomitant]
     Active Substance: OMEPRAZOLE MAGNESIUM
  19. ONDANSETRON [Concomitant]
     Active Substance: ONDANSETRON

REACTIONS (2)
  - Chronic kidney disease [Unknown]
  - End stage renal disease [Unknown]
